FAERS Safety Report 25021934 (Version 2)
Quarter: 2025Q3

REPORT INFORMATION
  Report Type: Spontaneous
  Country: CN (occurrence: CN)
  Receive Date: 20250228
  Receipt Date: 20250809
  Transmission Date: 20251020
  Serious: Yes (Hospitalization, Disabling, Other)
  Sender: ALEXION PHARMACEUTICALS
  Company Number: CN-ASTRAZENECA-202502CHN017672CN

PATIENT
  Age: 65 Year
  Sex: Female
  Weight: 60 kg

DRUGS (1)
  1. DAPAGLIFLOZIN [Suspect]
     Active Substance: DAPAGLIFLOZIN
     Indication: Diabetes mellitus
     Dosage: 10 MILLIGRAM, QD
     Dates: start: 20240124, end: 20250205

REACTIONS (17)
  - Sepsis [Recovering/Resolving]
  - Septic shock [Recovering/Resolving]
  - Acute kidney injury [Recovering/Resolving]
  - Calculus urinary [Recovering/Resolving]
  - Renal hydrocele [Recovering/Resolving]
  - Diabetic coma [Recovering/Resolving]
  - Thrombocytopenia [Recovering/Resolving]
  - Cardiac failure acute [Recovering/Resolving]
  - Pneumonia [Recovering/Resolving]
  - Cerebral infarction [Recovering/Resolving]
  - Urinary tract infection [Recovering/Resolving]
  - Metabolic acidosis [Recovering/Resolving]
  - Hyperlactacidaemia [Recovering/Resolving]
  - Pulmonary mass [Recovering/Resolving]
  - Hypertension [Recovering/Resolving]
  - Hypoproteinaemia [Recovering/Resolving]
  - Hyperuricaemia [Recovering/Resolving]

NARRATIVE: CASE EVENT DATE: 20250201
